FAERS Safety Report 14116631 (Version 1)
Quarter: 2017Q4

REPORT INFORMATION
  Report Type: Spontaneous
  Country: US (occurrence: US)
  Receive Date: 20171023
  Receipt Date: 20171023
  Transmission Date: 20180321
  Serious: No
  Sender: FDA-Public Use
  Company Number: US-DEPOMED, INC.-US-2017DEP000343

PATIENT

DRUGS (2)
  1. NUCYNTA ER [Suspect]
     Active Substance: TAPENTADOL HYDROCHLORIDE
     Indication: IMPAIRED GASTRIC EMPTYING
     Dosage: 100 MG, BID
     Route: 048
     Dates: end: 2017
  2. NUCYNTA ER [Suspect]
     Active Substance: TAPENTADOL HYDROCHLORIDE
     Indication: PANCREATITIS CHRONIC

REACTIONS (1)
  - Product use in unapproved indication [Recovered/Resolved]
